FAERS Safety Report 25840405 (Version 2)
Quarter: 2025Q4

REPORT INFORMATION
  Report Type: Spontaneous
  Country: TR (occurrence: TR)
  Receive Date: 20250924
  Receipt Date: 20251011
  Transmission Date: 20260118
  Serious: No
  Sender: ANI
  Company Number: TR-ANIPHARMA-030629

PATIENT
  Age: 39 Year
  Sex: Male

DRUGS (1)
  1. FLUVOXAMINE MALEATE [Suspect]
     Active Substance: FLUVOXAMINE MALEATE
     Indication: Obsessive-compulsive disorder
     Dosage: CONTINUE TAKING FLUVOXAMINE MALEATE

REACTIONS (2)
  - Fatigue [Not Recovered/Not Resolved]
  - Muscular weakness [Not Recovered/Not Resolved]
